FAERS Safety Report 23672202 (Version 1)
Quarter: 2024Q1

REPORT INFORMATION
  Report Type: Spontaneous
  Country: US (occurrence: US)
  Receive Date: 20240326
  Receipt Date: 20240326
  Transmission Date: 20240410
  Serious: Yes (Life-Threatening, Hospitalization, Other)
  Sender: FDA-Public Use
  Company Number: US-LEADINGPHARMA-US-2024LEALIT00057

PATIENT
  Age: 69 Year
  Sex: Female

DRUGS (1)
  1. THEOPHYLLINE [Suspect]
     Active Substance: THEOPHYLLINE
     Indication: Asthma
     Dosage: EXTENDED RELEASE
     Route: 065

REACTIONS (9)
  - Hypomagnesaemia [Unknown]
  - Drug level increased [Unknown]
  - Mental status changes [Recovered/Resolved]
  - Toxicity to various agents [Unknown]
  - Nausea [Unknown]
  - Status epilepticus [Unknown]
  - Hypokalaemia [Unknown]
  - Vomiting [Unknown]
  - Atrial fibrillation [Unknown]
